FAERS Safety Report 5902914-X (Version None)
Quarter: 2008Q3

REPORT INFORMATION
  Report Type: 
  Country: None (occurrence: None)
  Receive Date: 20080929
  Receipt Date: 20080929
  Transmission Date: 20090109
  Serious: Yes (Hospitalization)
  Sender: FDA-Public Use
  Company Number: None

PATIENT
  Age: 53 Year
  Sex: Female
  Weight: 54.4316 kg

DRUGS (2)
  1. LUNESTA [Suspect]
     Indication: SLEEP DISORDER
     Dosage: 1 TABLET NIGHT PO
     Route: 048
     Dates: start: 20070117, end: 20070815
  2. LUNESTA [Suspect]
     Indication: SLEEP DISORDER
     Dates: start: 20080512, end: 20080817

REACTIONS (2)
  - HUNGER [None]
  - INCREASED APPETITE [None]
